FAERS Safety Report 6851891-6 (Version None)
Quarter: 2010Q3

REPORT INFORMATION
  Report Type: 
  Country: None (occurrence: None)
  Receive Date: 20100717
  Receipt Date: 20071101
  Transmission Date: 20110219
  Serious: No
  Sender: FDA-Public Use
  Company Number: US-PFIZER INC-2007093393

PATIENT
  Sex: Female

DRUGS (2)
  1. CHANTIX [Suspect]
     Indication: SMOKING CESSATION THERAPY
     Dates: start: 20071001, end: 20070101
  2. MOTRIN [Suspect]
     Dates: start: 20071001, end: 20070101

REACTIONS (2)
  - DERMATITIS ALLERGIC [None]
  - GINGIVAL BLEEDING [None]
